FAERS Safety Report 9530937 (Version 2)
Quarter: 2013Q4

REPORT INFORMATION
  Report Type: Spontaneous
  Country: JP (occurrence: JP)
  Receive Date: 20130918
  Receipt Date: 20131004
  Transmission Date: 20140711
  Serious: Yes (Other)
  Sender: FDA-Public Use
  Company Number: JP-BAYER-2013-112059

PATIENT
  Sex: Female

DRUGS (1)
  1. YAZ [Suspect]
     Indication: MENORRHAGIA
     Dosage: UNK
     Route: 048
     Dates: start: 2011, end: 201309

REACTIONS (1)
  - Crohn^s disease [Not Recovered/Not Resolved]
